FAERS Safety Report 8557906-1 (Version None)
Quarter: 2012Q3

REPORT INFORMATION
  Report Type: 
  Country: None (occurrence: None)
  Receive Date: 20120801
  Receipt Date: 20110525
  Transmission Date: 20120928
  Serious: Yes (Other)
  Sender: FDA-Public Use
  Company Number: US-JNJFOC-20120711021

PATIENT
  Sex: Male

DRUGS (1)
  1. NICOTINE POLACRILEX [Suspect]
     Indication: SMOKING CESSATION THERAPY
     Route: 048

REACTIONS (7)
  - ORAL DISORDER [None]
  - ORAL MUCOSAL DISCOLOURATION [None]
  - DRUG ADMINISTRATION ERROR [None]
  - INTENTIONAL DRUG MISUSE [None]
  - STOMATITIS [None]
  - NICOTINE DEPENDENCE [None]
  - GINGIVAL PAIN [None]
